FAERS Safety Report 4981693-7 (Version None)
Quarter: 2006Q2

REPORT INFORMATION
  Report Type: 
  Country: None (occurrence: None)
  Receive Date: 20060420
  Receipt Date: 20060420
  Transmission Date: 20061013
  Serious: Yes (Hospitalization, Other)
  Sender: FDA-Public Use
  Company Number: None

PATIENT
  Sex: Male
  Weight: 84 kg

DRUGS (6)
  1. GEMCITABINE [Suspect]
     Indication: PANCREATIC CARCINOMA
     Dosage: 5180 MG
     Dates: start: 20060331, end: 20060407
  2. ARANESP [Concomitant]
  3. ATIVAN [Concomitant]
  4. LASIX [Concomitant]
  5. OXYCODONE [Concomitant]
  6. PRILOSEC [Concomitant]

REACTIONS (13)
  - BLOOD BICARBONATE DECREASED [None]
  - BLOOD POTASSIUM DECREASED [None]
  - COUGH [None]
  - DYSPNOEA [None]
  - HAEMOGLOBIN DECREASED [None]
  - LUNG INFILTRATION [None]
  - LYMPHOCYTE PERCENTAGE DECREASED [None]
  - OEDEMA PERIPHERAL [None]
  - POST PROCEDURAL COMPLICATION [None]
  - PRODUCTIVE COUGH [None]
  - PYREXIA [None]
  - STENT REMOVAL [None]
  - WHITE BLOOD CELL COUNT DECREASED [None]
